FAERS Safety Report 13082196 (Version 1)
Quarter: 2017Q1

REPORT INFORMATION
  Report Type: Spontaneous
  Country: US (occurrence: US)
  Receive Date: 20170103
  Receipt Date: 20170103
  Transmission Date: 20170428
  Serious: No
  Sender: FDA-Public Use
  Company Number: US-BAYER-2016-241840

PATIENT
  Age: 72 Year
  Sex: Male
  Weight: 79 kg

DRUGS (10)
  1. TRESIBA [Concomitant]
     Active Substance: INSULIN DEGLUDEC
     Dosage: UNK
  2. BAYER ASPIRIN [Concomitant]
     Active Substance: ASPIRIN
     Indication: PAIN
     Dosage: UNK
  3. THYROID [Concomitant]
     Active Substance: LEVOTHYROXINE\LIOTHYRONINE
     Dosage: UNK
  4. OMEPRAZOLE. [Concomitant]
     Active Substance: OMEPRAZOLE
     Dosage: UNK
  5. BAYER LOW DOSE [Suspect]
     Active Substance: ASPIRIN
     Dosage: UNK, QD
     Route: 048
  6. ALEVE [Suspect]
     Active Substance: NAPROXEN SODIUM
     Indication: PAIN
     Dosage: UNK
     Route: 048
  7. METFORMIN [Concomitant]
     Active Substance: METFORMIN HYDROCHLORIDE
     Dosage: UNK
  8. ANARA [Concomitant]
     Dosage: UNK
  9. LISINOPRIL. [Concomitant]
     Active Substance: LISINOPRIL
     Dosage: UNK
  10. CRESTOR [Concomitant]
     Active Substance: ROSUVASTATIN CALCIUM
     Dosage: UNK

REACTIONS (3)
  - Off label use [Unknown]
  - Drug ineffective [Unknown]
  - Product use issue [Unknown]
